FAERS Safety Report 25074064 (Version 1)
Quarter: 2025Q1

REPORT INFORMATION
  Report Type: Spontaneous
  Country: US (occurrence: None)
  Receive Date: 20250312
  Receipt Date: 20250312
  Transmission Date: 20250408
  Serious: Yes (Hospitalization)
  Sender: FDA-CTU
  Company Number: None

PATIENT
  Sex: Female

DRUGS (5)
  1. OPSUMIT [Suspect]
     Active Substance: MACITENTAN
  2. INSULIN NOS [Concomitant]
     Active Substance: INSULIN NOS
  3. LASIX [Concomitant]
     Active Substance: FUROSEMIDE
  4. WINREVAIR [Concomitant]
     Active Substance: SOTATERCEPT-CSRK
  5. ORENITRAM [Concomitant]
     Active Substance: TREPROSTINIL

REACTIONS (3)
  - Renal disorder [None]
  - Weight decreased [None]
  - Blood pressure increased [None]
